FAERS Safety Report 5874404-4 (Version None)
Quarter: 2008Q3

REPORT INFORMATION
  Report Type: 
  Country: None (occurrence: None)
  Receive Date: 20080908
  Receipt Date: 20080903
  Transmission Date: 20090109
  Serious: Yes (Other)
  Sender: FDA-Public Use
  Company Number: US-PFIZER INC-2007106033

PATIENT
  Sex: Female
  Weight: 52.2 kg

DRUGS (9)
  1. DILANTIN [Suspect]
     Indication: CONVULSION
     Dates: start: 19790101
  2. PHENYTOIN SODIUM [Suspect]
     Indication: CONVULSION
  3. DILTIAZEM HCL [Suspect]
  4. ANTIBIOTICS [Suspect]
     Indication: CYSTITIS
  5. PHENOBARBITAL TAB [Concomitant]
  6. MORPHINE [Concomitant]
  7. ALL OTHER THERAPEUTIC PRODUCTS [Concomitant]
     Indication: ELECTROLYTE SUBSTITUTION THERAPY
  8. ALL OTHER THERAPEUTIC PRODUCTS [Concomitant]
     Indication: PAIN
  9. FOSAMAX [Concomitant]
     Dates: start: 20080401

REACTIONS (9)
  - ABDOMINAL PAIN UPPER [None]
  - ANTICONVULSANT DRUG LEVEL DECREASED [None]
  - BALANCE DISORDER [None]
  - CONVULSION [None]
  - CYSTITIS [None]
  - DEHYDRATION [None]
  - DIZZINESS [None]
  - MALAISE [None]
  - TREMOR [None]
